FAERS Safety Report 10280140 (Version 3)
Quarter: 2014Q1

REPORT INFORMATION
  Report Type: Spontaneous
  Country: US (occurrence: None)
  Receive Date: 20120703
  Receipt Date: 20130524
  Transmission Date: 20141002
  Serious: Yes (Other)
  Sender: FDA-Public Use
  Company Number: PHEH2012US004505

PATIENT
  Age: 60 Year
  Sex: Female
  Weight: 54.4 kg

DRUGS (6)
  1. GILENYA (FTY) CAPSULE, 0.5MG [Suspect]
     Indication: MULTIPLE SCLEROSIS
     Route: 048
     Dates: start: 20110924, end: 20120315
  2. SYNTHROID (LEVOTHYROXINE SODIUM) [Concomitant]
  3. SIMVASTATIN (SIMVASTATIN) [Concomitant]
  4. BACLOFEN (BACLOFEN) [Concomitant]
  5. NEUPOGEN (FILGRASTIM) [Concomitant]
  6. GABAPENTIN (GABAPENTIN) [Concomitant]

REACTIONS (1)
  - White blood cell count decreased [None]
